FAERS Safety Report 9694307 (Version 2)
Quarter: 2013Q4

REPORT INFORMATION
  Report Type: Spontaneous
  Country: US (occurrence: US)
  Receive Date: 20131118
  Receipt Date: 20131118
  Transmission Date: 20140711
  Serious: Yes (Other)
  Sender: FDA-Public Use
  Company Number: US-GILEAD-2007-0013291

PATIENT
  Age: 68 Year
  Sex: Female
  Weight: 58.06 kg

DRUGS (9)
  1. LETAIRIS [Suspect]
     Indication: PULMONARY ARTERIAL HYPERTENSION
     Route: 048
     Dates: start: 20070813, end: 20070827
  2. URSODIOL [Concomitant]
     Indication: CHOLELITHIASIS
     Route: 048
  3. ZINC SULFATE [Concomitant]
     Indication: SUPPLEMENTATION THERAPY
     Route: 048
  4. NEURONTIN [Concomitant]
     Indication: NEUROPATHY PERIPHERAL
     Route: 048
  5. PRILOSEC [Concomitant]
     Indication: GASTROOESOPHAGEAL REFLUX DISEASE
     Route: 048
  6. SPIRONOLACTONE [Concomitant]
     Indication: CARDIAC FAILURE CONGESTIVE
     Route: 048
  7. NIFEDIPINE [Concomitant]
     Indication: ESSENTIAL HYPERTENSION
     Route: 048
  8. FUROSEMIDE [Concomitant]
     Indication: CARDIAC FAILURE CONGESTIVE
     Route: 048
  9. REMODULIN [Concomitant]
     Indication: PULMONARY ARTERIAL HYPERTENSION
     Route: 042
     Dates: start: 20070209

REACTIONS (1)
  - Nasal congestion [Recovered/Resolved]
